FAERS Safety Report 12842629 (Version 1)
Quarter: 2016Q4

REPORT INFORMATION
  Report Type: Spontaneous
  Country: US (occurrence: US)
  Receive Date: 20161012
  Receipt Date: 20161012
  Transmission Date: 20170207
  Serious: Yes (Disabling)
  Sender: FDA-Public Use
  Company Number: None

PATIENT
  Age: 21 Year
  Sex: Female
  Weight: 77.11 kg

DRUGS (1)
  1. NEXPLANON [Suspect]
     Active Substance: ETONOGESTREL
     Dates: start: 20140819, end: 20161012

REACTIONS (6)
  - Device breakage [None]
  - Nausea [None]
  - Dizziness [None]
  - Migraine [None]
  - Implant site pain [None]
  - Activities of daily living impaired [None]

NARRATIVE: CASE EVENT DATE: 20150107
